FAERS Safety Report 17273503 (Version 9)
Quarter: 2020Q3

REPORT INFORMATION
  Report Type: Spontaneous
  Country: US (occurrence: US)
  Receive Date: 20200115
  Receipt Date: 20200813
  Transmission Date: 20201102
  Serious: Yes (Life-Threatening, Hospitalization, Other)
  Sender: FDA-Public Use
  Company Number: US-AKCEA THERAPEUTICS-2020IS001016

PATIENT
  Age: 70 Year
  Sex: Male
  Weight: 78.27 kg

DRUGS (27)
  1. LIPITOR [Concomitant]
     Active Substance: ATORVASTATIN CALCIUM
     Route: 048
  2. NEURONTIN [Concomitant]
     Active Substance: GABAPENTIN
     Route: 048
  3. TEA, GREEN [Concomitant]
     Active Substance: GREEN TEA LEAF
     Route: 048
  4. EGCG [Concomitant]
     Active Substance: EPIGALLOCATECHIN GALLATE
     Route: 065
     Dates: start: 2018
  5. ASPIRIN /00002701/ [Concomitant]
     Active Substance: ASPIRIN
     Route: 048
  6. COMBIGAN [Concomitant]
     Active Substance: BRIMONIDINE TARTRATE\TIMOLOL MALEATE
     Route: 047
  7. TOPROL XL [Concomitant]
     Active Substance: METOPROLOL SUCCINATE
     Route: 048
  8. EPLERENONE. [Concomitant]
     Active Substance: EPLERENONE
     Route: 048
  9. XALATAN [Concomitant]
     Active Substance: LATANOPROST
     Route: 047
  10. TEGSEDI [Suspect]
     Active Substance: INOTERSEN SODIUM
     Route: 058
     Dates: start: 202001
  11. ISSD (INTEGRATED SYRINGE SAFETY DEVICE) [Suspect]
     Active Substance: DEVICE
  12. NEXIUM [Concomitant]
     Active Substance: ESOMEPRAZOLE MAGNESIUM
     Route: 065
  13. FINASTERIDE. [Concomitant]
     Active Substance: FINASTERIDE
     Route: 048
  14. PROTONIX /00661201/ [Concomitant]
     Active Substance: OMEPRAZOLE
     Route: 048
  15. LISINOPRIL. [Suspect]
     Active Substance: LISINOPRIL
     Route: 065
  16. PATISIRAN [Concomitant]
     Active Substance: PATISIRAN SODIUM
     Route: 065
  17. FUROSEMIDE. [Concomitant]
     Active Substance: FUROSEMIDE
     Route: 065
     Dates: start: 202005
  18. ALIGN JR [Concomitant]
     Route: 048
  19. LINZESS [Concomitant]
     Active Substance: LINACLOTIDE
     Route: 048
  20. DICYCLOMINE /00068601/ [Concomitant]
     Active Substance: DICYCLOMINE HYDROCHLORIDE
     Route: 065
  21. VITAMINS WITH MINERALS [Concomitant]
     Active Substance: MINERALS\VITAMINS
     Route: 048
  22. AMLODIPINE [Concomitant]
     Active Substance: AMLODIPINE BESYLATE
     Route: 065
  23. FUROSEMIDE. [Concomitant]
     Active Substance: FUROSEMIDE
     Route: 065
  24. FLUVOXAMINE [Concomitant]
     Active Substance: FLUVOXAMINE
     Route: 048
  25. ZYRTEC [Concomitant]
     Active Substance: CETIRIZINE HYDROCHLORIDE
     Route: 048
  26. TEGSEDI [Suspect]
     Active Substance: INOTERSEN SODIUM
     Indication: HEREDITARY NEUROPATHIC AMYLOIDOSIS
     Route: 058
     Dates: start: 20181218, end: 202001
  27. DIFLUNISAL. [Concomitant]
     Active Substance: DIFLUNISAL
     Route: 065
     Dates: start: 2018

REACTIONS (14)
  - Cardiac failure acute [Not Recovered/Not Resolved]
  - Influenza like illness [Unknown]
  - Hospitalisation [Recovered/Resolved]
  - Cardiac pacemaker insertion [Recovered/Resolved with Sequelae]
  - Drug hypersensitivity [Recovered/Resolved]
  - Weight fluctuation [Unknown]
  - Chills [Unknown]
  - Acute myocardial infarction [Recovered/Resolved with Sequelae]
  - Coronary artery stenosis [Not Recovered/Not Resolved]
  - Hypotension [Unknown]
  - Swollen tongue [Recovered/Resolved]
  - Coronavirus test positive [Unknown]
  - Chest pain [Unknown]
  - Influenza [Unknown]

NARRATIVE: CASE EVENT DATE: 202001
